FAERS Safety Report 4731645-7 (Version None)
Quarter: 2005Q3

REPORT INFORMATION
  Report Type: 
  Country: None (occurrence: None)
  Receive Date: 20050802
  Receipt Date: 20050727
  Transmission Date: 20060218
  Serious: Yes (Death, Hospitalization)
  Sender: FDA-Public Use
  Company Number: DE-JNJFOC-20050601922

PATIENT
  Sex: Female
  Weight: 64 kg

DRUGS (4)
  1. RISPERDAL CONSTA [Suspect]
     Indication: SCHIZOPHRENIA
     Route: 030
  2. ORFIRIL [Concomitant]
     Dosage: SINCE 20
     Route: 048
  3. INSULIN [Concomitant]
     Indication: DIABETES MELLITUS
     Route: 058
  4. MELPERONE [Concomitant]
     Route: 048

REACTIONS (3)
  - ASTHMA [None]
  - CARDIAC ARREST [None]
  - RESPIRATORY ARREST [None]
